FAERS Safety Report 7077231-8 (Version None)
Quarter: 2010Q4

REPORT INFORMATION
  Report Type: 
  Country: None (occurrence: None)
  Receive Date: 20101101
  Receipt Date: 20101018
  Transmission Date: 20110411
  Serious: Yes (Hospitalization)
  Sender: FDA-Public Use
  Company Number: US-ELI_LILLY_AND_COMPANY-US201010004007

PATIENT
  Sex: Female
  Weight: 56.1 kg

DRUGS (16)
  1. TASISULAM SODIUM [Suspect]
     Indication: OVARIAN CANCER
     Dosage: 1538 MG, ON DAY 4, CYCLE 1 ONLY, OF 28-DAY CYCLE
     Route: 042
     Dates: start: 20101011
  2. PEMETREXED [Suspect]
     Indication: OVARIAN CANCER
     Dosage: 375 MG/M2, ON DAY 1, CYCLE 1, OF 28-DAY CYCLE
     Route: 042
     Dates: start: 20101008
  3. DECADRON [Concomitant]
     Indication: PROPHYLAXIS OF NAUSEA AND VOMITING
     Dates: start: 20090127
  4. ATIVAN [Concomitant]
     Indication: ANXIETY
     Dates: start: 20090127
  5. COLACE [Concomitant]
     Indication: CONSTIPATION PROPHYLAXIS
     Dates: start: 20090206
  6. HALDOL [Concomitant]
     Dates: start: 20100916
  7. LACTULOSE [Concomitant]
     Indication: CONSTIPATION PROPHYLAXIS
     Dates: start: 20100916
  8. NEXIUM [Concomitant]
     Indication: DYSPEPSIA
     Dates: start: 20100916
  9. PHENERGAN [Concomitant]
     Indication: COUGH
     Dates: start: 20100916
  10. PREMARIN [Concomitant]
     Indication: BLOOD OESTROGEN DECREASED
     Dates: start: 20091127
  11. CELEXA [Concomitant]
     Indication: DEPRESSION
     Dates: start: 20091202
  12. VITAMIN B-12 [Concomitant]
     Indication: PREMEDICATION
     Dates: start: 20100917
  13. FOLIC ACID [Concomitant]
     Indication: PREMEDICATION
     Dates: start: 20100917
  14. SYMBICORT [Concomitant]
     Indication: ASTHMA
     Dates: start: 20101004
  15. LEVAQUIN [Concomitant]
     Indication: INFECTION
     Route: 048
     Dates: start: 20101012
  16. I.V. SOLUTIONS [Concomitant]
     Indication: OROPHARYNGEAL PAIN
     Dates: start: 20101014

REACTIONS (2)
  - MALAISE [None]
  - PYREXIA [None]
